FAERS Safety Report 8433088-1 (Version None)
Quarter: 2012Q2

REPORT INFORMATION
  Report Type: 
  Country: None (occurrence: None)
  Receive Date: 20120613
  Receipt Date: 20120605
  Transmission Date: 20120825
  Serious: Yes (Other)
  Sender: FDA-Public Use
  Company Number: PHEH2012US011415

PATIENT
  Sex: Female

DRUGS (24)
  1. POTASSIUM [Concomitant]
     Dosage: 1 DF, DAILY
  2. MULTI-VITAMINS [Concomitant]
  3. CLONIDINE [Concomitant]
     Dosage: 0.1 MG, DAILY
  4. LASIX [Concomitant]
     Dosage: 40 MG, DAILY
  5. NITROGLYCERIN [Concomitant]
  6. VITAMIN B-12 [Concomitant]
     Dosage: 2500 MG, DAILY
  7. NOVOLOG [Concomitant]
     Dosage: 3 DF, DAILY
  8. NEXIUM [Concomitant]
     Dosage: 40 MG, DAILY
  9. MIRAPEX [Concomitant]
     Dosage: 2 DF, DAILY
  10. CYMBALTA [Concomitant]
     Dosage: 1 DF, DAILY
  11. ASPIRIN [Concomitant]
     Dosage: 325 MG, UNK
  12. CARVEDILOL [Concomitant]
     Dosage: 2 DF, DAILY
  13. TOPAMAX [Concomitant]
     Dosage: 2 DF, DAILY
  14. CELEXA [Concomitant]
     Dosage: 1 DF, DAILY
  15. VALTURNA [Suspect]
     Dosage: 1 DF, DAILY (300 MG ALIS AND 320 MG VALS)
  16. LEVEMIS [Concomitant]
     Dosage: 2 DF, DAILY
  17. HYDROCODONE [Concomitant]
     Dosage: 10 MG, EVERY 4 HRS PRN
  18. CELEBREX [Concomitant]
     Dosage: 2 DF, DAILY
  19. VOLTAREN [Concomitant]
     Dosage: 4 DF, DAILY
  20. D3 [Concomitant]
  21. ASCORBIC ACID [Concomitant]
     Dosage: 1000 MG, DAILY
  22. XANAX [Concomitant]
     Dosage: 1 MG, Q6H
  23. TRAZODONE HCL [Concomitant]
     Dosage: 1 DF, DAILY
  24. IRON [Concomitant]
     Dosage: 27 MG, DAILY

REACTIONS (8)
  - TREMOR [None]
  - DEPRESSION [None]
  - ROAD TRAFFIC ACCIDENT [None]
  - CEREBROVASCULAR ACCIDENT [None]
  - DYSPNOEA [None]
  - LIMB TRAUMATIC AMPUTATION [None]
  - ANAEMIA [None]
  - NERVE INJURY [None]
